FAERS Safety Report 4314112-4 (Version None)
Quarter: 2004Q1

REPORT INFORMATION
  Report Type: 
  Country: None (occurrence: None)
  Receive Date: 20040302
  Receipt Date: 20040130
  Transmission Date: 20041129
  Serious: No
  Sender: FDA-Public Use
  Company Number: 701570

PATIENT
  Age: 54 Year
  Sex: Male
  Weight: 102.0593 kg

DRUGS (1)
  1. AMEVIVE [Suspect]
     Indication: PSORIASIS
     Dosage: 7.5 MG QW IV
     Route: 042
     Dates: start: 20030101, end: 20030101

REACTIONS (1)
  - PSORIASIS [None]
